FAERS Safety Report 4271806-7 (Version None)
Quarter: 2004Q1

REPORT INFORMATION
  Report Type: 
  Country: None (occurrence: None)
  Receive Date: 20040115
  Receipt Date: 20040108
  Transmission Date: 20041129
  Serious: Yes (Death)
  Sender: FDA-Public Use
  Company Number: GB-GLAXOSMITHKLINE-B0319267A

PATIENT
  Sex: Male

DRUGS (1)
  1. REQUIP [Suspect]

REACTIONS (1)
  - PULMONARY FIBROSIS [None]
